FAERS Safety Report 9993718 (Version 2)
Quarter: 2014Q1

REPORT INFORMATION
  Report Type: Report from Study
  Country: CN (occurrence: CN)
  Receive Date: 20140310
  Receipt Date: 20140314
  Transmission Date: 20141002
  Serious: Yes (Hospitalization)
  Sender: FDA-Public Use
  Company Number: PHHO2014CN003379

PATIENT
  Age: 15 Year
  Sex: Male
  Weight: 61.5 kg

DRUGS (2)
  1. ICL670A [Suspect]
     Indication: THALASSAEMIA
     Dosage: 10 MG/KG, QD
     Route: 048
     Dates: start: 20131021, end: 20131118
  2. ICL670A [Suspect]
     Dosage: 15 MG/KG, QD
     Route: 048
     Dates: start: 20131119, end: 20140302

REACTIONS (1)
  - Meniere^s disease [Not Recovered/Not Resolved]
